FAERS Safety Report 9929519 (Version 1)
Quarter: 2014Q1

REPORT INFORMATION
  Report Type: Spontaneous
  Country: DE (occurrence: DE)
  Receive Date: 20140227
  Receipt Date: 20140227
  Transmission Date: 20141002
  Serious: Yes (Congenital Anomaly)
  Sender: FDA-Public Use
  Company Number: DE-GLAXOSMITHKLINE-D0082970A

PATIENT
  Age: 0 Day
  Sex: Male
  Weight: 2.1 kg

DRUGS (4)
  1. LAMOTRIGINE [Suspect]
     Indication: BIPOLAR DISORDER
     Dosage: 200MG PER DAY
     Route: 048
     Dates: start: 20120407, end: 20121206
  2. SERTRALINE [Suspect]
     Indication: DEPRESSION
     Dosage: 100MG PER DAY
     Route: 064
     Dates: start: 20120407, end: 20121206
  3. L-THYROXIN-HENNING [Concomitant]
     Indication: AUTOIMMUNE THYROIDITIS
     Dosage: 75MCG PER DAY
     Route: 064
     Dates: start: 20120407, end: 20121206
  4. BENZOYL PEROXIDE [Concomitant]
     Indication: ACNE
     Route: 064
     Dates: start: 20120407, end: 20120518

REACTIONS (2)
  - Polydactyly [Recovered/Resolved]
  - Premature baby [Unknown]
